FAERS Safety Report 13604423 (Version 1)
Quarter: 2017Q2

REPORT INFORMATION
  Report Type: Spontaneous
  Country: US (occurrence: US)
  Receive Date: 20170602
  Receipt Date: 20170602
  Transmission Date: 20170830
  Serious: No
  Sender: FDA-Public Use
  Company Number: US-NOVEN PHARMACEUTICALS, INC.-US2016001397

PATIENT

DRUGS (4)
  1. FOCALIN [Concomitant]
     Active Substance: DEXMETHYLPHENIDATE HYDROCHLORIDE
     Dosage: 10 MG, MORNING AND LUNCH
  2. VITAMIN E [Concomitant]
     Active Substance: .ALPHA.-TOCOPHEROL
  3. DAYTRANA [Suspect]
     Active Substance: METHYLPHENIDATE
     Indication: ATTENTION DEFICIT/HYPERACTIVITY DISORDER
     Dosage: 30 MG, UNKNOWN
     Route: 062
     Dates: start: 2006
  4. CLONIDINE. [Concomitant]
     Active Substance: CLONIDINE
     Indication: INSOMNIA
     Dosage: 0.2 MG, BEDTIME

REACTIONS (1)
  - Application site discolouration [Not Recovered/Not Resolved]

NARRATIVE: CASE EVENT DATE: 2013
